FAERS Safety Report 10183950 (Version 2)
Quarter: 2014Q2

REPORT INFORMATION
  Report Type: Spontaneous
  Country: US (occurrence: US)
  Receive Date: 20140520
  Receipt Date: 20140606
  Transmission Date: 20141212
  Serious: No
  Sender: FDA-Public Use
  Company Number: US-009507513-1405USA008267

PATIENT
  Age: 76 Year
  Sex: Female
  Weight: 53.61 kg

DRUGS (2)
  1. OXYTROL FOR WOMEN [Suspect]
     Indication: HYPERTONIC BLADDER
     Dosage: UNK, UNKNOWN
     Route: 062
     Dates: start: 20140321, end: 20140402
  2. PREDNISONE [Concomitant]
     Indication: RADIATION PNEUMONITIS
     Dosage: UNK, UNKNOWN

REACTIONS (4)
  - Dysphonia [Unknown]
  - Dry mouth [Unknown]
  - Drug ineffective [Unknown]
  - Product quality issue [Unknown]
